FAERS Safety Report 6889283-6 (Version None)
Quarter: 2010Q3

REPORT INFORMATION
  Report Type: 
  Country: None (occurrence: None)
  Receive Date: 20100730
  Receipt Date: 20080127
  Transmission Date: 20110219
  Serious: No
  Sender: FDA-Public Use
  Company Number: US-PFIZER INC-2008009953

PATIENT
  Age: 60 Year
  Sex: Male

DRUGS (4)
  1. LIPITOR [Suspect]
     Indication: BLOOD CHOLESTEROL INCREASED
  2. ZOLOFT [Suspect]
     Indication: IRRITABILITY
  3. ZETIA [Concomitant]
  4. DRUG, UNSPECIFIED [Concomitant]

REACTIONS (5)
  - BLOOD PRESSURE INCREASED [None]
  - DYSPNOEA [None]
  - IRRITABILITY [None]
  - LOW DENSITY LIPOPROTEIN DECREASED [None]
  - WEIGHT INCREASED [None]
